FAERS Safety Report 8510517-6 (Version None)
Quarter: 2012Q3

REPORT INFORMATION
  Report Type: 
  Country: None (occurrence: None)
  Receive Date: 20120716
  Receipt Date: 20120629
  Transmission Date: 20120928
  Serious: Yes (Death, Other)
  Sender: FDA-Public Use
  Company Number: FR-009507513-2012SP027734

PATIENT

DRUGS (7)
  1. COPEGUS [Suspect]
     Indication: PRODUCT USED FOR UNKNOWN INDICATION
     Dosage: 1000 MG, QD
     Route: 048
     Dates: start: 20111001, end: 20120306
  2. PEGASYS [Suspect]
     Indication: PRODUCT USED FOR UNKNOWN INDICATION
     Dosage: 180 A?G, UNK
     Route: 058
     Dates: start: 20111001
  3. OXAZEPAM [Concomitant]
     Indication: PRODUCT USED FOR UNKNOWN INDICATION
     Dosage: 50 MG, TID
     Route: 048
  4. COPEGUS [Suspect]
     Dosage: 800 MG, QD
     Route: 048
     Dates: start: 20120306
  5. METHADON HCL TAB [Concomitant]
     Indication: POLYSUBSTANCE DEPENDENCE
     Dosage: 60 MG, QD
  6. VICTRELIS [Suspect]
     Indication: PRODUCT USED FOR UNKNOWN INDICATION
     Dosage: 800 MG, Q8H
     Route: 048
     Dates: start: 20111201
  7. NEORECORMON [Concomitant]
     Indication: ANAEMIA
     Dosage: 60000 IU, UNK
     Route: 058
     Dates: start: 20120301

REACTIONS (3)
  - VIITH NERVE PARALYSIS [None]
  - WEIGHT DECREASED [None]
  - ANAEMIA [None]
